FAERS Safety Report 23526035 (Version 2)
Quarter: 2024Q1

REPORT INFORMATION
  Report Type: Report from Study
  Country: US (occurrence: US)
  Receive Date: 20240215
  Receipt Date: 20240319
  Transmission Date: 20240410
  Serious: Yes (Hospitalization, Other)
  Sender: FDA-Public Use
  Company Number: US-JAZZ PHARMACEUTICALS-2024-US-002692

PATIENT
  Age: 17 Year
  Sex: Female

DRUGS (1)
  1. EPIDIOLEX [Suspect]
     Active Substance: CANNABIDIOL
     Indication: Lennox-Gastaut syndrome
     Dosage: 2.5 MILLILITER, BID, G-TUBE
     Dates: start: 201904

REACTIONS (2)
  - Lower limb fracture [Unknown]
  - Seizure [Unknown]

NARRATIVE: CASE EVENT DATE: 20240205
